FAERS Safety Report 17847844 (Version 3)
Quarter: 2020Q2

REPORT INFORMATION
  Report Type: Spontaneous
  Country: US (occurrence: US)
  Receive Date: 20200601
  Receipt Date: 20200622
  Transmission Date: 20200714
  Serious: No
  Sender: FDA-Public Use
  Company Number: US-TRIS PHARMA, INC.-20US008955

PATIENT

DRUGS (12)
  1. ATORVASTATIN [Concomitant]
     Active Substance: ATORVASTATIN
     Indication: PRODUCT USED FOR UNKNOWN INDICATION
     Dosage: UNK
     Route: 065
  2. ELIQUIS [Concomitant]
     Active Substance: APIXABAN
     Dosage: UNK, MORNING
     Route: 065
  3. OTHER DRUGS FOR OBSTRUCTIVE AIRWAY DISEASES, INHALANTS [Concomitant]
     Indication: ASTHMA
     Dosage: UNK, PRN
  4. BABY ASPIRIN [Concomitant]
     Active Substance: ASPIRIN
     Indication: PRODUCT USED FOR UNKNOWN INDICATION
     Dosage: 81 MILLIGRAM
     Route: 065
  5. MELATONIN [Concomitant]
     Active Substance: MELATONIN
     Indication: SLEEP DISORDER
     Dosage: UNK, PRN
     Route: 065
  6. HYDROCODONE + APAP [Suspect]
     Active Substance: ACETAMINOPHEN\HYDROCODONE BITARTRATE
     Indication: ARTHRITIS
     Dosage: 10 MILLIGRAM, Q 6 HR
     Route: 048
     Dates: start: 20200601
  7. ELIQUIS [Concomitant]
     Active Substance: APIXABAN
     Indication: PRODUCT USED FOR UNKNOWN INDICATION
     Dosage: UNK, BEDTIME
     Route: 065
  8. PREGABALIN. [Concomitant]
     Active Substance: PREGABALIN
     Indication: PRODUCT USED FOR UNKNOWN INDICATION
     Dosage: UNK
     Route: 065
  9. HYDROCODONE + APAP [Suspect]
     Active Substance: ACETAMINOPHEN\HYDROCODONE BITARTRATE
     Dosage: 5 MILLIGRAM, Q 6 HR
     Route: 048
     Dates: start: 202005, end: 202005
  10. OTHER ANTIHYPERTENSIVES [Concomitant]
     Active Substance: UNSPECIFIED INGREDIENT
     Indication: HYPERTENSION
     Dosage: UNK
     Route: 065
  11. HYDROCODONE + APAP [Suspect]
     Active Substance: ACETAMINOPHEN\HYDROCODONE BITARTRATE
     Dosage: 10 MILLIGRAM, Q 6 HR
     Route: 048
     Dates: start: 20200510
  12. HYDROCODONE + APAP [Suspect]
     Active Substance: ACETAMINOPHEN\HYDROCODONE BITARTRATE
     Indication: NECK PAIN
     Dosage: 5 MILLIGRAM, Q 6 HR
     Route: 048

REACTIONS (6)
  - Malaise [Recovered/Resolved]
  - Product dose omission [Unknown]
  - Heart rate increased [Recovered/Resolved]
  - Agitation [Recovered/Resolved]
  - Somnolence [Recovered/Resolved]
  - Dementia [Recovered/Resolved]

NARRATIVE: CASE EVENT DATE: 202005
